FAERS Safety Report 23105008 (Version 1)
Quarter: 2023Q4

REPORT INFORMATION
  Report Type: Spontaneous
  Country: US (occurrence: None)
  Receive Date: 20231023
  Receipt Date: 20231023
  Transmission Date: 20240109
  Serious: Yes (Hospitalization)
  Sender: FDA-Public Use
  Company Number: None

PATIENT
  Age: 52 Year
  Sex: Male

DRUGS (2)
  1. ATORVASTATIN CALCIUM [Suspect]
     Active Substance: ATORVASTATIN CALCIUM
     Dosage: FREQUENCY : DAILY;?
     Route: 048
     Dates: start: 20230112, end: 20230221
  2. IBRUTINIB [Suspect]
     Active Substance: IBRUTINIB
     Dosage: FREQUENCY : DAILY;?
     Dates: start: 20180911, end: 20230221

REACTIONS (7)
  - Dizziness [None]
  - Headache [None]
  - Myalgia [None]
  - Rhabdomyolysis [None]
  - Chest pain [None]
  - Dyspnoea [None]
  - Therapy cessation [None]

NARRATIVE: CASE EVENT DATE: 20230112
